FAERS Safety Report 4692616-2 (Version None)
Quarter: 2005Q2

REPORT INFORMATION
  Report Type: 
  Country: None (occurrence: None)
  Receive Date: 20050617
  Receipt Date: 20050606
  Transmission Date: 20051028
  Serious: Yes (Death, Hospitalization)
  Sender: FDA-Public Use
  Company Number: US-AMGEN-US137148

PATIENT
  Sex: Female
  Weight: 80 kg

DRUGS (16)
  1. NEULASTA [Suspect]
     Indication: CHEMOTHERAPY
     Route: 058
     Dates: start: 20050505, end: 20050525
  2. TAXOL [Concomitant]
     Route: 042
     Dates: start: 20050504, end: 20050525
  3. CARBOPLATIN [Concomitant]
     Route: 042
     Dates: start: 20050504, end: 20050525
  4. ATIVAN [Concomitant]
  5. ATENOLOL [Concomitant]
  6. ZESTRIL [Concomitant]
  7. HYDROCHLOROTHIAZIDE [Concomitant]
  8. ALLOPURINOL [Concomitant]
  9. ALOXI [Concomitant]
     Dates: start: 20050504, end: 20050525
  10. DECADRON [Concomitant]
     Dates: start: 20050504, end: 20050525
  11. BENADRYL [Concomitant]
     Dates: start: 20050504, end: 20050525
  12. TAGAMET [Concomitant]
     Dates: start: 20050504, end: 20050525
  13. ARANESP [Concomitant]
     Route: 042
     Dates: start: 20050504, end: 20050525
  14. LOVENOX [Concomitant]
     Dates: start: 20050528
  15. PROTONIX [Concomitant]
     Dates: start: 20050528
  16. ULTRAM [Concomitant]

REACTIONS (19)
  - ARTHRALGIA [None]
  - BLOOD CREATININE INCREASED [None]
  - BLOOD SODIUM DECREASED [None]
  - BLOOD UREA INCREASED [None]
  - CELLULITIS [None]
  - CULTURE URINE POSITIVE [None]
  - DISORIENTATION [None]
  - DRUG INEFFECTIVE [None]
  - ERYTHEMA [None]
  - ESCHERICHIA INFECTION [None]
  - FEBRILE NEUTROPENIA [None]
  - HAEMATOCRIT DECREASED [None]
  - HAEMATURIA [None]
  - HAEMOGLOBIN DECREASED [None]
  - PLATELET COUNT DECREASED [None]
  - SEPSIS [None]
  - SKIN WARM [None]
  - STAPHYLOCOCCAL INFECTION [None]
  - WHITE BLOOD CELL COUNT DECREASED [None]
